FAERS Safety Report 8131723-9 (Version None)
Quarter: 2012Q1

REPORT INFORMATION
  Report Type: 
  Country: None (occurrence: None)
  Receive Date: 20120213
  Receipt Date: 20120203
  Transmission Date: 20120608
  Serious: Yes (Hospitalization)
  Sender: FDA-Public Use
  Company Number: US-ASTELLAS-2012US000291

PATIENT
  Age: 65 Year
  Sex: Female

DRUGS (2)
  1. VORICONAZOLE [Suspect]
     Indication: PRODUCT USED FOR UNKNOWN INDICATION
     Dosage: UNK
     Route: 065
  2. MYCAMINE [Suspect]
     Indication: ASPERGILLOSIS
     Dosage: 125 MG, UID/QD
     Route: 065
     Dates: start: 20111220, end: 20120101

REACTIONS (3)
  - OFF LABEL USE [None]
  - CELLULITIS [None]
  - GOUT [None]
